FAERS Safety Report 10869188 (Version 1)
Quarter: 2015Q1

REPORT INFORMATION
  Report Type: Spontaneous
  Country: US (occurrence: US)
  Receive Date: 20150225
  Receipt Date: 20150225
  Transmission Date: 20150721
  Serious: Yes (Hospitalization)
  Sender: FDA-Public Use
  Company Number: US-IMPAX LABORATORIES, INC-2015-IPXL-00198

PATIENT
  Age: 44 Year
  Sex: Male

DRUGS (4)
  1. CYPROHEPTADINE. [Suspect]
     Active Substance: CYPROHEPTADINE
     Indication: MUSCLE SPASTICITY
     Route: 065
  2. DIAZEPAM. [Suspect]
     Active Substance: DIAZEPAM
     Indication: MUSCLE SPASTICITY
     Dosage: UNK
     Route: 042
  3. BACLOFEN. [Suspect]
     Active Substance: BACLOFEN
     Dosage: UNK
     Route: 048
  4. BACLOFEN. [Suspect]
     Active Substance: BACLOFEN
     Indication: MUSCLE SPASTICITY
     Dosage: UNK
     Route: 037

REACTIONS (15)
  - Tachycardia [Unknown]
  - Drug withdrawal syndrome [Unknown]
  - Hypertensive emergency [Unknown]
  - Deep vein thrombosis [Unknown]
  - Tachypnoea [Unknown]
  - Confusional state [Unknown]
  - Peripheral ischaemia [Unknown]
  - Drug ineffective [Unknown]
  - Myocardial infarction [Unknown]
  - Shock [Unknown]
  - Hyperthermia [Unknown]
  - Anxiety [Unknown]
  - Myoclonus [Unknown]
  - Respiratory failure [Unknown]
  - Renal failure [Unknown]
